FAERS Safety Report 7931831-9 (Version None)
Quarter: 2011Q4

REPORT INFORMATION
  Report Type: 
  Country: None (occurrence: None)
  Receive Date: 20111121
  Receipt Date: 20111110
  Transmission Date: 20120403
  Serious: Yes (Other)
  Sender: FDA-Public Use
  Company Number: GB-ASTRAZENECA-2011SE64855

PATIENT
  Age: 72 Year

DRUGS (2)
  1. PULMICORT [Suspect]
     Route: 055
  2. PULMICORT [Suspect]
     Route: 055

REACTIONS (16)
  - ASTHMA [None]
  - CANDIDIASIS [None]
  - TRANSIENT ISCHAEMIC ATTACK [None]
  - ARRHYTHMIA [None]
  - TACHYCARDIA [None]
  - HYPERTENSION [None]
  - PALPITATIONS [None]
  - THERAPY CESSATION [None]
  - HYPOTHYROIDISM [None]
  - CARDIAC DISORDER [None]
  - BRONCHITIS [None]
  - PNEUMONIA [None]
  - ANXIETY [None]
  - ATRIAL FIBRILLATION [None]
  - NASOPHARYNGITIS [None]
  - COUGH [None]
